FAERS Safety Report 15533231 (Version 1)
Quarter: 2018Q4

REPORT INFORMATION
  Report Type: Spontaneous
  Country: US (occurrence: US)
  Receive Date: 20181019
  Receipt Date: 20181019
  Transmission Date: 20190205
  Serious: Yes (Other)
  Sender: FDA-Public Use
  Company Number: US-SAKK-2018SA284898AA

PATIENT
  Age: 68 Year
  Sex: Male

DRUGS (1)
  1. LOVENOX [Suspect]
     Active Substance: ENOXAPARIN SODIUM
     Indication: CARDIOVASCULAR DISORDER
     Dosage: 150 MG, BID
     Route: 065
     Dates: start: 20111009

REACTIONS (4)
  - Wrong technique in product usage process [Unknown]
  - Abdominal distension [Unknown]
  - Injection site swelling [Unknown]
  - Stoma site haemorrhage [Unknown]
